FAERS Safety Report 5986114-3 (Version None)
Quarter: 2008Q4

REPORT INFORMATION
  Report Type: 
  Country: None (occurrence: None)
  Receive Date: 20081205
  Receipt Date: 20081205
  Transmission Date: 20090506
  Serious: Yes (Hospitalization)
  Sender: FDA-Public Use
  Company Number: None

PATIENT
  Age: 63 Year
  Sex: Female
  Weight: 97.5 kg

DRUGS (1)
  1. DAPTOMYCIN 500MG CUBIST [Suspect]
     Indication: STAPHYLOCOCCAL INFECTION
     Dosage: 590 MG Q24H IV, 5 DOSES
     Route: 042
     Dates: start: 20080826, end: 20080831

REACTIONS (1)
  - RHABDOMYOLYSIS [None]
